FAERS Safety Report 8388792-0 (Version None)
Quarter: 2012Q2

REPORT INFORMATION
  Report Type: 
  Country: None (occurrence: None)
  Receive Date: 20120528
  Receipt Date: 20120521
  Transmission Date: 20120825
  Serious: Yes (Hospitalization, Other)
  Sender: FDA-Public Use
  Company Number: US-AMGEN-USASP2012032208

PATIENT
  Age: 65 Year
  Sex: Male

DRUGS (2)
  1. ENBREL [Suspect]
     Indication: RHEUMATOID ARTHRITIS
     Dosage: 25 MG, 2 TIMES/WK
     Dates: start: 19980101
  2. ENBREL [Suspect]
     Indication: PSORIATIC ARTHROPATHY

REACTIONS (16)
  - ATRIAL FIBRILLATION [None]
  - HEART RATE IRREGULAR [None]
  - LOSS OF CONSCIOUSNESS [None]
  - HYPERTENSION [None]
  - DRUG PRESCRIBING ERROR [None]
  - SLEEP APNOEA SYNDROME [None]
  - CHEST PAIN [None]
  - FALL [None]
  - POST-TRAUMATIC NECK SYNDROME [None]
  - RHEUMATOID ARTHRITIS [None]
  - INGROWING NAIL [None]
  - MYOCARDIAL INFARCTION [None]
  - BUNION [None]
  - HEAD INJURY [None]
  - CHOLECYSTECTOMY [None]
  - PSORIATIC ARTHROPATHY [None]
